FAERS Safety Report 5874176-3 (Version None)
Quarter: 2008Q3

REPORT INFORMATION
  Report Type: 
  Country: None (occurrence: None)
  Receive Date: 20080908
  Receipt Date: 20080827
  Transmission Date: 20090109
  Serious: Yes (Hospitalization)
  Sender: FDA-Public Use
  Company Number: PL-SANOFI-SYNTHELABO-A01200810400

PATIENT
  Sex: Male
  Weight: 75 kg

DRUGS (10)
  1. PROSCAR [Concomitant]
     Indication: DRUG USE FOR UNKNOWN INDICATION
     Dosage: UNK
     Route: 065
  2. OMNIC [Concomitant]
     Indication: DRUG USE FOR UNKNOWN INDICATION
     Dosage: UNK
     Route: 065
  3. HYGOTON [Concomitant]
     Indication: DRUG USE FOR UNKNOWN INDICATION
     Dosage: UNK
     Route: 065
  4. PRESTARIUM [Concomitant]
     Indication: DRUG USE FOR UNKNOWN INDICATION
     Dosage: UNK
     Route: 065
  5. ANAFRANIL [Suspect]
     Indication: ESSENTIAL HYPERTENSION
     Route: 048
     Dates: end: 20080727
  6. AFOBAM [Suspect]
     Indication: ANXIETY DISORDER
     Route: 048
     Dates: end: 20080727
  7. IPOREL [Suspect]
     Indication: ESSENTIAL HYPERTENSION
     Route: 048
     Dates: end: 20080727
  8. DOPEGYT [Suspect]
     Indication: ESSENTIAL HYPERTENSION
     Route: 048
     Dates: end: 20080727
  9. STILNOX [Suspect]
     Indication: ANXIETY DISORDER
     Route: 048
     Dates: end: 20080727
  10. STILNOX [Suspect]
     Route: 048
     Dates: end: 20080727

REACTIONS (6)
  - HEADACHE [None]
  - IMPAIRED DRIVING ABILITY [None]
  - ROAD TRAFFIC ACCIDENT [None]
  - SOMNOLENCE [None]
  - VERTIGO [None]
  - VISUAL IMPAIRMENT [None]
